FAERS Safety Report 8141450-X (Version None)
Quarter: 2012Q1

REPORT INFORMATION
  Report Type: 
  Country: None (occurrence: None)
  Receive Date: 20120216
  Receipt Date: 20120213
  Transmission Date: 20120608
  Serious: Yes (Hospitalization, Other)
  Sender: FDA-Public Use
  Company Number: FR-AMGEN-FRANI2012006180

PATIENT
  Age: 58 Year
  Sex: Female

DRUGS (13)
  1. RABEPRAZOLE SODIUM [Concomitant]
     Dosage: UNK
     Route: 048
  2. TERCIAN [Concomitant]
     Dosage: UNK
     Route: 048
  3. PREDNISONE TAB [Concomitant]
     Indication: HAEMOLYTIC ANAEMIA
  4. FOLIC ACID [Concomitant]
     Dosage: 5 MG, QD
     Route: 048
  5. DEPAKENE [Concomitant]
     Dosage: UNK
     Route: 048
  6. ALPRAZOLAM [Concomitant]
     Dosage: UNK
     Route: 048
  7. FERROUS FUMARATE [Concomitant]
     Dosage: 65 MG, QD
     Route: 048
  8. PARACETAMOL [Concomitant]
     Indication: PAIN
     Dosage: 1 G, QID
  9. CRESTOR [Concomitant]
     Dosage: 5 MG, QD
     Route: 048
  10. PREDNISONE TAB [Concomitant]
     Indication: IDIOPATHIC THROMBOCYTOPENIC PURPURA
     Dosage: UNK UNK, QD
  11. VITAMIN D [Concomitant]
     Dosage: UNK UNK, QD
  12. ROMIPLOSTIM [Suspect]
     Indication: THROMBOCYTOPENIA
     Dosage: 10 MUG/KG, QWK
     Route: 058
     Dates: start: 20110727
  13. URBANYL [Concomitant]
     Dosage: UNK
     Route: 048

REACTIONS (5)
  - HAEMOLYTIC ANAEMIA [None]
  - ALOPECIA [None]
  - THROMBOCYTOPENIA [None]
  - HAIR GROWTH ABNORMAL [None]
  - CONDITION AGGRAVATED [None]
